FAERS Safety Report 15448666 (Version 1)
Quarter: 2018Q3

REPORT INFORMATION
  Report Type: Spontaneous
  Country: US (occurrence: US)
  Receive Date: 20180929
  Receipt Date: 20180929
  Transmission Date: 20181010
  Serious: No
  Sender: FDA-Public Use
  Company Number: US-SA-2018SA268125

PATIENT

DRUGS (1)
  1. XYZAL ALLERGY 24HR [Suspect]
     Active Substance: LEVOCETIRIZINE DIHYDROCHLORIDE
     Dosage: UNK UNK, UNK
     Route: 065

REACTIONS (11)
  - Cough [Unknown]
  - Ear pain [Unknown]
  - Somnolence [Unknown]
  - Rhinorrhoea [Unknown]
  - Myalgia [Unknown]
  - Pain [Unknown]
  - Oropharyngeal pain [Unknown]
  - Dry throat [Unknown]
  - Conjunctival hyperaemia [Unknown]
  - Chest discomfort [Unknown]
  - Dysphonia [Unknown]
